FAERS Safety Report 7353136-X (Version None)
Quarter: 2011Q1

REPORT INFORMATION
  Report Type: 
  Country: None (occurrence: None)
  Receive Date: 20110315
  Receipt Date: 20110303
  Transmission Date: 20110831
  Serious: Yes (Hospitalization, Other)
  Sender: FDA-Public Use
  Company Number: JP-BAYER-2011-017504

PATIENT
  Sex: Female

DRUGS (9)
  1. UNCODEABLE ^UNCLASSIFIABLE^ [Concomitant]
     Route: 048
  2. TRANSAMIN [Concomitant]
     Route: 048
  3. THYRADIN [Concomitant]
     Route: 048
  4. AVELOX [Suspect]
     Indication: NASOPHARYNGITIS
     Dosage: 400 MG, BID
     Route: 048
     Dates: start: 20110221, end: 20110222
  5. GLIMEPIRIDE [Concomitant]
     Indication: DIABETES MELLITUS
     Dosage: DAILY DOSE 1 MG
     Route: 048
  6. JANUVIA [Concomitant]
     Indication: DIABETES MELLITUS
     Route: 048
  7. PLAVIX [Concomitant]
     Dosage: DAILY DOSE 75 MG
     Route: 048
  8. CRESTOR [Concomitant]
     Route: 048
  9. LOXOPROFEN [Concomitant]
     Route: 048

REACTIONS (1)
  - HYPOGLYCAEMIA [None]
